FAERS Safety Report 6723554 (Version 2)
Quarter: 2020Q3

REPORT INFORMATION
  Report Type: Report from Study
  Country: US (occurrence: US)
  Receive Date: 20080811
  Receipt Date: 20080829
  Transmission Date: 20201104
  Serious: Yes (Hospitalization, Other)
  Sender: FDA-Public Use
  Company Number: US-ROCHE-578393

PATIENT
  Age: 65 Year
  Sex: Male
  Weight: 81.2 kg

DRUGS (4)
  1. IBANDRONIC ACID. [Suspect]
     Active Substance: IBANDRONIC ACID
     Indication: OSTEOPOROSIS
     Route: 048
     Dates: start: 200505, end: 200604
  2. RISEDRONIC ACID [Suspect]
     Active Substance: RISEDRONIC ACID
     Route: 048
     Dates: start: 200604, end: 200702
  3. RISEDRONIC ACID [Suspect]
     Active Substance: RISEDRONIC ACID
     Indication: OSTEOPOROSIS
     Route: 048
     Dates: start: 200211, end: 200505
  4. IBANDRONIC ACID. [Suspect]
     Active Substance: IBANDRONIC ACID
     Dosage: FREQUENCY: ONCE
     Route: 042
     Dates: start: 200702, end: 200702

REACTIONS (2)
  - Osteonecrosis [Recovering/Resolving]
  - Jaw fracture [Unknown]

NARRATIVE: CASE EVENT DATE: 20070312
